FAERS Safety Report 6758723-5 (Version None)
Quarter: 2010Q2

REPORT INFORMATION
  Report Type: 
  Country: None (occurrence: None)
  Receive Date: 20100607
  Receipt Date: 20100601
  Transmission Date: 20101027
  Serious: Yes (Other)
  Sender: FDA-Public Use
  Company Number: US-MERCK-1005USA02954

PATIENT
  Age: 77 Year
  Sex: Female

DRUGS (14)
  1. FOSAMAX [Suspect]
     Route: 048
  2. TEKTURNA [Concomitant]
     Route: 065
  3. ASPIRIN [Concomitant]
     Route: 065
  4. CALCIUM (UNSPECIFIED) [Suspect]
     Route: 065
  5. CALCIUM CITRATE [Concomitant]
     Route: 065
  6. FOLTX [Concomitant]
     Route: 065
  7. NEXIUM [Suspect]
     Route: 065
  8. HYDROCHLOROTHIAZIDE [Concomitant]
     Route: 048
  9. BONIVA [Suspect]
     Route: 065
  10. ACTONEL [Suspect]
     Route: 065
  11. CRESTOR [Concomitant]
     Route: 065
  12. FORTEO [Suspect]
     Route: 065
  13. UBIDECARENONE [Concomitant]
     Route: 065
  14. VITAMINS (UNSPECIFIED) [Concomitant]
     Route: 065

REACTIONS (4)
  - BONE PAIN [None]
  - FEMUR FRACTURE [None]
  - GALLBLADDER DISORDER [None]
  - GASTROINTESTINAL DISORDER [None]
